FAERS Safety Report 4575358-3 (Version None)
Quarter: 2005Q1

REPORT INFORMATION
  Report Type: 
  Country: None (occurrence: None)
  Receive Date: 20050127
  Receipt Date: 20050127
  Transmission Date: 20050727
  Serious: Yes (Life-Threatening, Hospitalization)
  Sender: FDA-Public Use
  Company Number: None

PATIENT
  Age: 80 Year
  Sex: Male
  Weight: 68 kg

DRUGS (9)
  1. IVIG   10GM    UNK [Suspect]
     Indication: HYPOGAMMAGLOBULINAEMIA
     Dosage: 25GM   ONCE   INTRAVENOU
     Route: 042
     Dates: start: 20030127, end: 20030127
  2. IVIG      5GM      UNK [Suspect]
     Indication: THROMBOCYTOPENIA
  3. LEVOFLOXACIN [Concomitant]
  4. AMLODIPINE [Concomitant]
  5. ALLOPURINOL [Concomitant]
  6. DOXAZOSIN [Concomitant]
  7. PREDNISONE TAB [Concomitant]
  8. WARFARIN SODIUM [Concomitant]
  9. NON-IONIC CONTRAST MEDIA [Concomitant]

REACTIONS (9)
  - EMPYEMA [None]
  - HAEMODIALYSIS [None]
  - HYPOGAMMAGLOBULINAEMIA [None]
  - PNEUMONIA [None]
  - PULMONARY MYCOSIS [None]
  - RENAL FAILURE [None]
  - SEPSIS [None]
  - THERAPY NON-RESPONDER [None]
  - THROMBOCYTOPENIA [None]
